FAERS Safety Report 5803921-8 (Version None)
Quarter: 2008Q3

REPORT INFORMATION
  Report Type: 
  Country: None (occurrence: None)
  Receive Date: 20080703
  Receipt Date: 20080614
  Transmission Date: 20090109
  Serious: Yes (Other)
  Sender: FDA-Public Use
  Company Number: ENT 2008-0074

PATIENT
  Sex: Male

DRUGS (8)
  1. COMTAN [Suspect]
     Indication: DRUG THERAPY
     Dosage: 100MG ONCE DAILY ORAL; 100MG TWICE DAILY ORAL; 100MG DAILY ORAL
     Route: 048
     Dates: start: 20080423, end: 20080427
  2. COMTAN [Suspect]
     Indication: DRUG THERAPY
     Dosage: 100MG ONCE DAILY ORAL; 100MG TWICE DAILY ORAL; 100MG DAILY ORAL
     Route: 048
     Dates: start: 20080428, end: 20080502
  3. COMTAN [Suspect]
     Indication: DRUG THERAPY
     Dosage: 100MG ONCE DAILY ORAL; 100MG TWICE DAILY ORAL; 100MG DAILY ORAL
     Route: 048
     Dates: start: 20080503, end: 20080505
  4. MADOPAR [Concomitant]
  5. MENEST [Concomitant]
  6. SELEGILINE HCL [Concomitant]
  7. SIFROL [Concomitant]
  8. PERMAX [Concomitant]

REACTIONS (3)
  - ALANINE AMINOTRANSFERASE INCREASED [None]
  - ASPARTATE AMINOTRANSFERASE INCREASED [None]
  - LIVER DISORDER [None]
